FAERS Safety Report 20944755 (Version 2)
Quarter: 2022Q3

REPORT INFORMATION
  Report Type: Report from Study
  Country: CA (occurrence: CA)
  Receive Date: 20220610
  Receipt Date: 20220811
  Transmission Date: 20221027
  Serious: Yes (Other)
  Sender: FDA-Public Use
  Company Number: CA-BAUSCH-BL-2022-013743

PATIENT
  Sex: Female

DRUGS (5)
  1. CONTRAVE [Suspect]
     Active Substance: BUPROPION HYDROCHLORIDE\NALTREXONE HYDROCHLORIDE
     Indication: Weight control
     Dosage: 90/8MG
     Route: 048
     Dates: start: 2022, end: 2022
  2. CONTRAVE [Suspect]
     Active Substance: BUPROPION HYDROCHLORIDE\NALTREXONE HYDROCHLORIDE
     Dosage: 90/8MG, 4 TABS/DAY - STOPPED
     Route: 048
     Dates: start: 202205, end: 20220516
  3. CONTRAVE [Suspect]
     Active Substance: BUPROPION HYDROCHLORIDE\NALTREXONE HYDROCHLORIDE
     Dosage: 90/8MG, 2ND ATTEMPT.
     Route: 048
     Dates: start: 2022, end: 2022
  4. CONTRAVE [Suspect]
     Active Substance: BUPROPION HYDROCHLORIDE\NALTREXONE HYDROCHLORIDE
     Dosage: 90/8MG ,2ND ATTEMPT. 1 TAB IN MORNING AND 1 AT NIGHT
     Route: 048
     Dates: start: 2022, end: 2022
  5. CONTRAVE [Suspect]
     Active Substance: BUPROPION HYDROCHLORIDE\NALTREXONE HYDROCHLORIDE
     Dosage: 90/8MG, ,2ND ATTEMPT. 2 TAB IN MORNING AND 1 AT NIGHT
     Route: 048
     Dates: start: 2022, end: 20220713

REACTIONS (6)
  - Cerebrovascular accident [Recovered/Resolved]
  - Food craving [Unknown]
  - Dizziness [Recovered/Resolved]
  - Therapy interrupted [Unknown]
  - Drug titration error [Unknown]
  - Product prescribing error [Unknown]

NARRATIVE: CASE EVENT DATE: 20220101
